FAERS Safety Report 9127046 (Version 1)
Quarter: 2013Q1

REPORT INFORMATION
  Report Type: Spontaneous
  Country: US (occurrence: US)
  Receive Date: 20130122
  Receipt Date: 20130122
  Transmission Date: 20140127
  Serious: Yes (Hospitalization, Other)
  Sender: FDA-Public Use
  Company Number: US-ELI_LILLY_AND_COMPANY-US201301006111

PATIENT
  Age: 62 Year
  Sex: Male

DRUGS (1)
  1. GEMCITABINE HYDROCHLORIDE [Suspect]
     Indication: PANCREATIC CARCINOMA

REACTIONS (5)
  - Pulmonary toxicity [Recovered/Resolved]
  - Pericardial effusion [Recovered/Resolved]
  - Eosinophilia [Recovered/Resolved]
  - Hypertensive emergency [Unknown]
  - Blood glucose abnormal [None]
